FAERS Safety Report 17579375 (Version 1)
Quarter: 2020Q1

REPORT INFORMATION
  Report Type: Spontaneous
  Country: US (occurrence: US)
  Receive Date: 20200325
  Receipt Date: 20200325
  Transmission Date: 20200409
  Serious: No
  Sender: FDA-Public Use
  Company Number: US-BEH-2020114313

PATIENT
  Age: 30 Year
  Sex: Female

DRUGS (1)
  1. HIZENTRA [Suspect]
     Active Substance: HUMAN IMMUNOGLOBULIN G
     Indication: CHRONIC INFLAMMATORY DEMYELINATING POLYRADICULONEUROPATHY
     Dosage: 20 GRAM EVERY 9 DAYS
     Route: 058
     Dates: start: 20190814

REACTIONS (2)
  - Infusion site pain [Recovered/Resolved]
  - Injection site mass [Unknown]

NARRATIVE: CASE EVENT DATE: 20200304
